FAERS Safety Report 13079695 (Version 1)
Quarter: 2017Q1

REPORT INFORMATION
  Report Type: Report from Study
  Country: US (occurrence: US)
  Receive Date: 20170103
  Receipt Date: 20170103
  Transmission Date: 20170428
  Serious: Yes (Other)
  Sender: FDA-Public Use
  Company Number: US-AMGEN-USASL2016184896

PATIENT
  Age: 79 Year
  Sex: Female

DRUGS (2)
  1. VAGIFEM [Concomitant]
     Active Substance: ESTRADIOL
  2. PROLIA [Suspect]
     Active Substance: DENOSUMAB
     Indication: OSTEOGENESIS IMPERFECTA
     Dosage: UNK
     Route: 065

REACTIONS (8)
  - Skin mass [Recovering/Resolving]
  - Lid sulcus deepened [Unknown]
  - Rash papular [Recovering/Resolving]
  - Rash macular [Recovering/Resolving]
  - Pruritus [Recovering/Resolving]
  - Bladder cancer [Recovered/Resolved]
  - Eye haemorrhage [Unknown]
  - Rash [Recovering/Resolving]

NARRATIVE: CASE EVENT DATE: 20161224
